FAERS Safety Report 8416177-7 (Version None)
Quarter: 2012Q2

REPORT INFORMATION
  Report Type: 
  Country: None (occurrence: None)
  Receive Date: 20120606
  Receipt Date: 20120601
  Transmission Date: 20120825
  Serious: Yes (Other)
  Sender: FDA-Public Use
  Company Number: PHHY2012GR047569

PATIENT
  Age: 70 Year
  Sex: Male

DRUGS (4)
  1. SPIRIVA [Concomitant]
     Indication: CHRONIC OBSTRUCTIVE PULMONARY DISEASE
     Dosage: 1 DF EVERY MORNING
  2. LEXOTANIL [Concomitant]
     Dosage: 1 DF, 1-2 TIMES PER YEAR
  3. ONBREZ [Suspect]
     Indication: CHRONIC OBSTRUCTIVE PULMONARY DISEASE
  4. ASMANEX TWISTHALER [Concomitant]
     Dosage: 1 DF EVERY MORNING

REACTIONS (2)
  - SUICIDAL IDEATION [None]
  - AGITATION [None]
